FAERS Safety Report 5911711-0 (Version None)
Quarter: 2008Q4

REPORT INFORMATION
  Report Type: 
  Country: None (occurrence: None)
  Receive Date: 20081003
  Receipt Date: 20080926
  Transmission Date: 20090506
  Serious: Yes (Hospitalization)
  Sender: FDA-Public Use
  Company Number: 2008SP006247

PATIENT
  Age: 61 Year
  Sex: Male
  Weight: 85 kg

DRUGS (10)
  1. SCH 503034 (S-P) (HCV PROTEASE INHIBITOR) (SCH 503034) [Suspect]
     Indication: HEPATITIS C
     Dosage: 800 MG;TID;PO
     Route: 048
     Dates: start: 20070510, end: 20080331
  2. PEG-INTRON [Suspect]
     Indication: HEPATITIS C
     Dosage: 150 MCG;QW;SC
     Route: 058
     Dates: start: 20070510, end: 20080331
  3. RIBAVIRIN [Suspect]
     Indication: HEPATITIS C
     Dosage: 1200 MG;QD;PO; 400 MG;BID;PO
     Route: 048
     Dates: start: 20070510, end: 20080331
  4. ELAVIL [Concomitant]
  5. ACETAMINOPHEN [Concomitant]
  6. ELOCON (MOMETASONE) [Concomitant]
  7. FUROATE (TOPICAL) [Concomitant]
  8. DOVONEX [Concomitant]
  9. FOLIC ACID [Concomitant]
  10. VITAMIN B-12 [Concomitant]

REACTIONS (7)
  - HAEMOGLOBIN DECREASED [None]
  - LEFT ATRIAL DILATATION [None]
  - LEFT VENTRICULAR DYSFUNCTION [None]
  - LEFT VENTRICULAR HYPERTROPHY [None]
  - PALPITATIONS [None]
  - PERICARDIAL EFFUSION [None]
  - PERICARDITIS [None]
